FAERS Safety Report 19826518 (Version 2)
Quarter: 2021Q4

REPORT INFORMATION
  Report Type: Spontaneous
  Country: ES (occurrence: ES)
  Receive Date: 20210914
  Receipt Date: 20211018
  Transmission Date: 20220303
  Serious: Yes (Other)
  Sender: FDA-Public Use
  Company Number: ES-ACCORD-237521

PATIENT
  Age: 65 Year
  Sex: Male

DRUGS (8)
  1. ATORVASTATIN [Interacting]
     Active Substance: ATORVASTATIN
     Indication: Low density lipoprotein increased
     Dates: start: 20210531
  2. CLOPIDOGREL [Interacting]
     Active Substance: CLOPIDOGREL BISULFATE
     Indication: Low density lipoprotein increased
     Dates: start: 20210531
  3. ASPIRIN [Interacting]
     Active Substance: ASPIRIN
     Indication: Ischaemic cardiomyopathy
     Dates: start: 20210531
  4. TELMISARTAN [Interacting]
     Active Substance: TELMISARTAN
     Indication: Hypertension
     Dates: start: 20210531
  5. BISOPROLOL [Interacting]
     Active Substance: BISOPROLOL
     Indication: Hypertension
     Dosage: 2.5/D
     Dates: start: 20210531
  6. METFORMIN [Interacting]
     Active Substance: METFORMIN HYDROCHLORIDE
     Indication: Type 2 diabetes mellitus
     Dates: start: 20210531
  7. EMPAGLIFLOZIN [Interacting]
     Active Substance: EMPAGLIFLOZIN
     Indication: Type 2 diabetes mellitus
     Dates: start: 20210531
  8. DOCONEXENT [Interacting]
     Active Substance: DOCONEXENT
     Indication: Product used for unknown indication
     Route: 048
     Dates: start: 20210531

REACTIONS (5)
  - Drug interaction [Unknown]
  - Fatigue [Recovered/Resolved]
  - Gingival bleeding [Recovered/Resolved]
  - Contusion [Recovered/Resolved]
  - Hypertension [Recovered/Resolved]
